FAERS Safety Report 6634372-4 (Version None)
Quarter: 2010Q1

REPORT INFORMATION
  Report Type: 
  Country: None (occurrence: None)
  Receive Date: 20100225
  Receipt Date: 20090303
  Transmission Date: 20100710
  Serious: Yes (Other)
  Sender: FDA-Public Use
  Company Number: DSA_33307_2009

PATIENT
  Sex: Female

DRUGS (2)
  1. VASOTEC [Suspect]
     Indication: DRUG USE FOR UNKNOWN INDICATION
     Dosage: (DF ORAL), (10 MG QD ORAL)
     Route: 048
  2. K-DUR [Concomitant]

REACTIONS (2)
  - COUGH [None]
  - RENAL FAILURE [None]
